FAERS Safety Report 26002706 (Version 2)
Quarter: 2025Q4

REPORT INFORMATION
  Report Type: Spontaneous
  Country: US (occurrence: US)
  Receive Date: 20251106
  Receipt Date: 20251125
  Transmission Date: 20260118
  Serious: Yes (Other)
  Sender: TEVA
  Company Number: US-TEVA-VS-3387477

PATIENT
  Age: 59 Year
  Sex: Female

DRUGS (1)
  1. AJOVY [Suspect]
     Active Substance: FREMANEZUMAB-VFRM
     Indication: Migraine with aura
     Route: 058

REACTIONS (4)
  - Road traffic accident [Recovering/Resolving]
  - Neck injury [Recovering/Resolving]
  - Accident at work [Unknown]
  - Impaired work ability [Unknown]

NARRATIVE: CASE EVENT DATE: 20250824
